FAERS Safety Report 8121058-2 (Version None)
Quarter: 2012Q1

REPORT INFORMATION
  Report Type: 
  Country: None (occurrence: None)
  Receive Date: 20120203
  Receipt Date: 20120125
  Transmission Date: 20120608
  Serious: Yes (Life-Threatening, Hospitalization)
  Sender: FDA-Public Use
  Company Number: 1174768

PATIENT
  Age: 38 Year
  Sex: Female

DRUGS (5)
  1. MITOXANTRONE HYDROCHLORIDE [Suspect]
     Indication: MULTIPLE SCLEROSIS
     Dosage: 12 MG/M 2 MILLIGRAM(S)/SQ. METER
     Route: 042
  2. BACLOFEN [Concomitant]
  3. GABAPENTIN [Concomitant]
  4. COPAXONE [Concomitant]
  5. PAROXETINE HYDROCHLORIDE [Concomitant]

REACTIONS (1)
  - BREAST CANCER [None]
